FAERS Safety Report 5100488-7 (Version None)
Quarter: 2006Q3

REPORT INFORMATION
  Report Type: 
  Country: None (occurrence: None)
  Receive Date: 20060731
  Receipt Date: 20060615
  Transmission Date: 20061208
  Serious: No
  Sender: FDA-Public Use
  Company Number: 2006PV015719

PATIENT
  Age: 68 Year
  Sex: Female
  Weight: 108.8633 kg

DRUGS (8)
  1. BYETTA [Suspect]
     Indication: DIABETES MELLITUS NON-INSULIN-DEPENDENT
     Dosage: 5 MCG;BID;SC
     Route: 058
     Dates: start: 20060515, end: 20060529
  2. HUMULIN N [Concomitant]
  3. HUMALOG [Concomitant]
  4. FOSAMAX [Concomitant]
  5. LASIX [Concomitant]
  6. COREG [Concomitant]
  7. BENICAR [Concomitant]
  8. NORVASC [Concomitant]

REACTIONS (7)
  - BACK PAIN [None]
  - BLOOD GLUCOSE DECREASED [None]
  - DECREASED APPETITE [None]
  - DYSURIA [None]
  - NAUSEA [None]
  - THERAPEUTIC RESPONSE UNEXPECTED [None]
  - URINE POTASSIUM INCREASED [None]
